FAERS Safety Report 16744489 (Version 1)
Quarter: 2019Q3

REPORT INFORMATION
  Report Type: Spontaneous
  Country: JP (occurrence: JP)
  Receive Date: 20190827
  Receipt Date: 20190827
  Transmission Date: 20191005
  Serious: Yes (Other)
  Sender: FDA-Public Use
  Company Number: JP-SUN PHARMACEUTICAL INDUSTRIES LTD-2019RR-219003

PATIENT
  Age: 83 Year
  Sex: Male
  Weight: 47 kg

DRUGS (8)
  1. LENALIDOMIDE [Suspect]
     Active Substance: LENALIDOMIDE
     Indication: PLASMA CELL MYELOMA
     Dosage: 10 MILLIGRAM, DAILY
     Route: 065
     Dates: start: 201405, end: 201408
  2. MELPHALAN. [Suspect]
     Active Substance: MELPHALAN
     Dosage: 10 MILLIGRAM, DAILY
     Route: 065
  3. FUROSEMIDE. [Concomitant]
     Active Substance: FUROSEMIDE
     Indication: PRODUCT USED FOR UNKNOWN INDICATION
     Dosage: UNK
     Route: 065
     Dates: start: 201403
  4. PREDNISOLONE. [Suspect]
     Active Substance: PREDNISOLONE
     Dosage: 30 MILLIGRAM, DAILY
  5. PREDNISOLONE. [Suspect]
     Active Substance: PREDNISOLONE
     Indication: PLASMA CELL MYELOMA
     Dosage: 20 MILLIGRAM, DAILY
     Route: 065
     Dates: start: 201403
  6. DEXAMETHASONE. [Suspect]
     Active Substance: DEXAMETHASONE
     Dosage: 4 MILLIGRAM
  7. MELPHALAN. [Suspect]
     Active Substance: MELPHALAN
     Indication: PLASMA CELL MYELOMA
     Dosage: 6 MILLIGRAM, DAILY
     Route: 065
     Dates: start: 201403
  8. DEXAMETHASONE. [Suspect]
     Active Substance: DEXAMETHASONE
     Indication: PLASMA CELL MYELOMA
     Dosage: 8 MILLIGRAM, DAILY
     Route: 065
     Dates: start: 201405

REACTIONS (12)
  - Somnolence [Unknown]
  - Pruritus [Unknown]
  - Cancer pain [Unknown]
  - Rash [Unknown]
  - Constipation [Unknown]
  - Oedema [Unknown]
  - Psychiatric symptom [Unknown]
  - Disease progression [Unknown]
  - Malaise [Unknown]
  - Diarrhoea [Unknown]
  - Therapy partial responder [Unknown]
  - Drug ineffective [Unknown]
